FAERS Safety Report 20702070 (Version 1)
Quarter: 2022Q2

REPORT INFORMATION
  Report Type: Spontaneous
  Country: US (occurrence: None)
  Receive Date: 20220411
  Receipt Date: 20220411
  Transmission Date: 20220721
  Serious: No
  Sender: FDA-Public Use
  Company Number: None

PATIENT
  Sex: Female

DRUGS (5)
  1. ARMOUR THYROID [Suspect]
     Active Substance: THYROID, PORCINE
     Indication: Hypothyroidism
     Dosage: OTHER QUANTITY : 1 TABLET(S);?
     Route: 048
  2. OMEGA-3 ACIDS [Concomitant]
     Active Substance: OMEGA-3 FATTY ACIDS
  3. vit D3 with K2 [Concomitant]
  4. methylcare [Concomitant]
  5. IODINE [Concomitant]
     Active Substance: IODINE

REACTIONS (6)
  - Product substitution issue [None]
  - Palpitations [None]
  - Pruritus [None]
  - Urticaria [None]
  - Product formulation issue [None]
  - Suspected product contamination [None]

NARRATIVE: CASE EVENT DATE: 20220302
